FAERS Safety Report 9313048 (Version 1)
Quarter: 2013Q2

REPORT INFORMATION
  Report Type: Report from Study
  Country: US (occurrence: US)
  Receive Date: 20130528
  Receipt Date: 20130528
  Transmission Date: 20140414
  Serious: No
  Sender: FDA-Public Use
  Company Number: US-ABBOTT-13P-163-1082652-00

PATIENT
  Age: 59 Year
  Sex: Male
  Weight: 120.31 kg

DRUGS (14)
  1. ANDROGEL [Suspect]
     Indication: BLOOD TESTOSTERONE DECREASED
     Dosage: 2 PUMPS
     Route: 061
     Dates: start: 2012, end: 201303
  2. ANDROGEL [Suspect]
     Dosage: 3 PUMPS
     Route: 061
     Dates: start: 201303
  3. LISINOPRIL [Concomitant]
     Indication: HYPERTENSION
  4. HCT [Concomitant]
     Indication: HYPERTENSION
  5. NORVASC [Concomitant]
     Indication: HYPERTENSION
  6. METOPROLOL [Concomitant]
     Indication: HYPERTENSION
  7. LEVOTHYROXINE [Concomitant]
     Indication: HYPOTHYROIDISM
  8. LORTAB [Concomitant]
     Indication: BACK PAIN
  9. KLONOPIN [Concomitant]
     Indication: ANXIETY
  10. BACLOFEN [Concomitant]
     Indication: BACK PAIN
  11. ABILIFY [Concomitant]
     Indication: DEPRESSION
  12. CELEXA [Concomitant]
     Indication: DEPRESSION
  13. PRAVASTATIN [Concomitant]
     Indication: BLOOD CHOLESTEROL INCREASED
  14. OMEPRAZOLE [Concomitant]
     Indication: GASTROOESOPHAGEAL REFLUX DISEASE

REACTIONS (1)
  - Blood testosterone decreased [Not Recovered/Not Resolved]
